FAERS Safety Report 9862369 (Version 1)
Quarter: 2014Q1

REPORT INFORMATION
  Report Type: Spontaneous
  Country: US (occurrence: None)
  Receive Date: 20140130
  Receipt Date: 20140130
  Transmission Date: 20141002
  Serious: Yes (Death)
  Sender: FDA-Public Use
  Company Number: 2014AP000599

PATIENT
  Age: 52 Year
  Sex: Female

DRUGS (3)
  1. ZOLPIDEM TARTRATE TABLETS [Suspect]
  2. INSULIN [Suspect]
  3. ACETAMINOPHEN [Suspect]

REACTIONS (2)
  - Completed suicide [None]
  - Cardio-respiratory arrest [None]
